FAERS Safety Report 6345559-2 (Version None)
Quarter: 2009Q3

REPORT INFORMATION
  Report Type: 
  Country: None (occurrence: None)
  Receive Date: 20090821
  Receipt Date: 20090520
  Transmission Date: 20100115
  Serious: No
  Sender: FDA-Public Use
  Company Number: 8046595

PATIENT
  Age: 40 Year
  Sex: Female
  Weight: 79.4 kg

DRUGS (10)
  1. CIMZIA [Suspect]
     Indication: CROHN'S DISEASE
     Dosage: 400 MG SC
     Route: 058
     Dates: start: 20081121
  2. FLAGYL [Concomitant]
  3. PAMINE FORTE [Concomitant]
  4. VICODIN [Concomitant]
  5. MULTI-VITAMIN [Concomitant]
  6. VITAMIN B-12 [Concomitant]
  7. ENTOCORT EC [Concomitant]
  8. OXYCONTIN [Concomitant]
  9. FIORICET [Concomitant]
  10. DILAUDID [Concomitant]

REACTIONS (6)
  - ARTHRALGIA [None]
  - HEADACHE [None]
  - INJECTION SITE IRRITATION [None]
  - MYALGIA [None]
  - NAUSEA [None]
  - VOMITING [None]
